FAERS Safety Report 10905058 (Version 1)
Quarter: 2015Q1

REPORT INFORMATION
  Report Type: Spontaneous
  Country: US (occurrence: None)
  Receive Date: 20150107
  Receipt Date: 20150107
  Transmission Date: 20150721
  Serious: No
  Sender: FDA-Public Use
  Company Number: 2014TUS013223

PATIENT
  Age: 48 Year
  Sex: Female
  Weight: 81.2 kg

DRUGS (2)
  1. MULTIVITAMIN /00097801/ (ASCORBIC ACID, CALCIUM PANTOTHENATE ERGOCALCIFEROL, NICOTINAMIDE, PYRIDOZINE HYDROCHLORIDE, RETINOL, RIBOFLAVIN, THIAMINE HYDROCHLORIDE)? [Concomitant]
  2. CONTRAVE [Suspect]
     Active Substance: BUPROPION HYDROCHLORIDE\NALTREXONE HYDROCHLORIDE
     Indication: WEIGHT CONTROL
     Dosage: 1 TABLET, QD, ORAL
     Route: 048
     Dates: start: 20141101, end: 20141107

REACTIONS (2)
  - Nausea [None]
  - Dizziness [None]
